FAERS Safety Report 4848823-9 (Version None)
Quarter: 2005Q4

REPORT INFORMATION
  Report Type: 
  Country: None (occurrence: None)
  Receive Date: 20051115
  Receipt Date: 20050802
  Transmission Date: 20060501
  Serious: Yes (Hospitalization)
  Sender: FDA-Public Use
  Company Number: 404133

PATIENT
  Age: 73 Year
  Sex: Female

DRUGS (2)
  1. PEGASYS [Suspect]
     Indication: HEPATITIS C
     Dates: start: 20050427, end: 20050515
  2. COPEGUS [Suspect]
     Indication: HEPATITIS C
     Dosage: ORAL
     Route: 048
     Dates: start: 20050414

REACTIONS (5)
  - ANAEMIA [None]
  - ARRHYTHMIA [None]
  - ELECTROLYTE IMBALANCE [None]
  - FAECES DISCOLOURED [None]
  - FATIGUE [None]
